FAERS Safety Report 6527650-0 (Version None)
Quarter: 2010Q1

REPORT INFORMATION
  Report Type: 
  Country: None (occurrence: None)
  Receive Date: 20100105
  Receipt Date: 20091228
  Transmission Date: 20100710
  Serious: Yes (Hospitalization, Other)
  Sender: FDA-Public Use
  Company Number: US-BAYER-200917901BCC

PATIENT
  Age: 61 Year
  Sex: Male

DRUGS (16)
  1. ALEVE (CAPLET) [Suspect]
     Indication: ARTHRITIS
     Route: 048
     Dates: start: 20090101
  2. DIGOXIN [Concomitant]
  3. LISINOPRIL [Concomitant]
  4. FUROSEMIDE [Concomitant]
  5. BLIND (SPRIRIVA) [Concomitant]
  6. CARVEDILOL [Concomitant]
  7. CADUET [Concomitant]
  8. TRAZODONE HCL [Concomitant]
  9. ALPRAZOLAM [Concomitant]
  10. POTASSIUM [Concomitant]
  11. QUETIAPINE [Concomitant]
  12. BUPROPION HCL [Concomitant]
  13. ASPIRIN [Concomitant]
  14. IBUPROFEN [Concomitant]
  15. TIOTROPIUM INHALATION [Concomitant]
     Indication: CHRONIC OBSTRUCTIVE PULMONARY DISEASE
     Route: 045
  16. ALBUTEROL VS. PLACEBO [Concomitant]
     Indication: CHRONIC OBSTRUCTIVE PULMONARY DISEASE

REACTIONS (9)
  - BLOOD CREATININE INCREASED [None]
  - DECREASED APPETITE [None]
  - FALL [None]
  - MUSCULAR WEAKNESS [None]
  - OEDEMA PERIPHERAL [None]
  - RENAL FAILURE ACUTE [None]
  - SENSATION OF HEAVINESS [None]
  - SYNCOPE [None]
  - URINARY RETENTION [None]
